FAERS Safety Report 13448075 (Version 3)
Quarter: 2017Q2

REPORT INFORMATION
  Report Type: Report from Study
  Country: None (occurrence: US)
  Receive Date: 20170417
  Receipt Date: 20170531
  Transmission Date: 20170830
  Serious: Yes (Other)
  Sender: FDA-Public Use
  Company Number: US-MALLINCKRODT-T201701247

PATIENT
  Age: 38 Year
  Sex: Female

DRUGS (1)
  1. REPOSITORY CORTICOTROPIN INJECTION [Suspect]
     Active Substance: CORTICOTROPIN
     Indication: GLOMERULONEPHRITIS MINIMAL LESION
     Dosage: 80 UNITS / 1 ML, 2 TIMES PER WEEK, 9.30 AM , WEDNESDAY/SATURDAY
     Route: 058
     Dates: start: 20170221

REACTIONS (7)
  - Proteinuria [Not Recovered/Not Resolved]
  - Injection site pallor [Not Recovered/Not Resolved]
  - Systemic mastocytosis [Not Recovered/Not Resolved]
  - Pharyngitis streptococcal [Recovered/Resolved]
  - Paraesthesia [Not Recovered/Not Resolved]
  - Acne [Not Recovered/Not Resolved]
  - Fluid retention [Not Recovered/Not Resolved]

NARRATIVE: CASE EVENT DATE: 20170401
